FAERS Safety Report 5399325-5 (Version None)
Quarter: 2007Q3

REPORT INFORMATION
  Report Type: 
  Country: None (occurrence: None)
  Receive Date: 20070727
  Receipt Date: 20070716
  Transmission Date: 20080115
  Serious: Yes (Life-Threatening)
  Sender: FDA-Public Use
  Company Number: FR-BAXTER-2007BH006480

PATIENT
  Age: 35 Year
  Sex: Male

DRUGS (4)
  1. SUPRANE [Suspect]
     Indication: ANAESTHESIA
     Dosage: DOSE UNIT:UNKNOWN
     Route: 055
     Dates: start: 20070628, end: 20070628
  2. NIMBEX [Suspect]
     Indication: ANAESTHESIA
     Route: 042
     Dates: start: 20070628, end: 20070628
  3. DIPRIVAN [Suspect]
     Indication: ANAESTHESIA
     Route: 042
     Dates: start: 20070628, end: 20070628
  4. SUFENTANIL CITRATE [Suspect]
     Indication: ANAESTHESIA
     Route: 042
     Dates: start: 20070628, end: 20070628

REACTIONS (2)
  - BRONCHOSPASM [None]
  - URTICARIA [None]
